FAERS Safety Report 4338157-3 (Version None)
Quarter: 2004Q1

REPORT INFORMATION
  Report Type: 
  Country: None (occurrence: None)
  Receive Date: 20040329
  Receipt Date: 20040210
  Transmission Date: 20041129
  Serious: No
  Sender: FDA-Public Use
  Company Number: USA040259024

PATIENT
  Age: 43 Year
  Sex: Male
  Weight: 82 kg

DRUGS (3)
  1. STRATTERA [Suspect]
     Indication: ATTENTION DEFICIT/HYPERACTIVITY DISORDER
     Dosage: 50 MG/DAY
     Dates: start: 20040205, end: 20040210
  2. PROSCAR [Concomitant]
  3. AMBIEN [Concomitant]

REACTIONS (3)
  - ALOPECIA [None]
  - HYPOTRICHOSIS [None]
  - PRURITUS [None]
